FAERS Safety Report 9503547 (Version 1)
Quarter: 2013Q1

REPORT INFORMATION
  Report Type: Spontaneous
  Country: US (occurrence: None)
  Receive Date: 20130226
  Receipt Date: 20130226
  Transmission Date: 20140127
  Serious: Yes (Other)
  Sender: FDA-Public Use
  Company Number: PHEH2012US022171

PATIENT
  Sex: 0

DRUGS (1)
  1. TOBI (TOBRAMYCIN) SOL. AEROSOL METERED DOSE INH. [Suspect]
     Indication: CYSTIC FIBROSIS
     Route: 055
     Dates: end: 20121020

REACTIONS (1)
  - Bronchospasm [None]
